FAERS Safety Report 11828841 (Version 3)
Quarter: 2016Q1

REPORT INFORMATION
  Report Type: Spontaneous
  Country: JP (occurrence: JP)
  Receive Date: 20151211
  Receipt Date: 20160314
  Transmission Date: 20160525
  Serious: Yes (Hospitalization, Other)
  Sender: FDA-Public Use
  Company Number: JP-PFIZER INC-2015436500

PATIENT
  Age: 54 Year
  Sex: Male

DRUGS (2)
  1. LOPEMIN /00384302/ [Concomitant]
     Active Substance: LOPERAMIDE HYDROCHLORIDE
  2. XALKORI [Suspect]
     Active Substance: CRIZOTINIB
     Indication: LUNG ADENOCARCINOMA
     Dosage: 250 MG, 2X/DAY
     Route: 048
     Dates: start: 20151021, end: 20160213

REACTIONS (5)
  - Haemoptysis [Recovered/Resolved]
  - Disease progression [Unknown]
  - Lung adenocarcinoma [Unknown]
  - Pneumothorax [Recovered/Resolved]
  - Diarrhoea [Recovered/Resolved]

NARRATIVE: CASE EVENT DATE: 20151029
